FAERS Safety Report 4442439-4 (Version None)
Quarter: 2004Q3

REPORT INFORMATION
  Report Type: 
  Country: None (occurrence: None)
  Receive Date: 20040903
  Receipt Date: 20040729
  Transmission Date: 20050211
  Serious: Yes (Other)
  Sender: FDA-Public Use
  Company Number: 2004UW16207

PATIENT
  Age: 72 Year
  Sex: Male
  Weight: 73.4827 kg

DRUGS (3)
  1. CRESTOR [Suspect]
     Indication: BLOOD CHOLESTEROL INCREASED
     Dosage: 10 MG PO
     Route: 048
  2. COREG [Concomitant]
  3. ALTACE [Concomitant]

REACTIONS (1)
  - MUSCLE SPASMS [None]
